FAERS Safety Report 7882860-5 (Version None)
Quarter: 2011Q4

REPORT INFORMATION
  Report Type: 
  Country: None (occurrence: None)
  Receive Date: 20111101
  Receipt Date: 20110621
  Transmission Date: 20120403
  Serious: No
  Sender: FDA-Public Use
  Company Number: US-AMGEN-USASP2011031617

PATIENT
  Age: 45 Year
  Sex: Male

DRUGS (5)
  1. MULTI-TABS                         /00261701/ [Concomitant]
  2. ENBREL [Suspect]
     Indication: PSORIATIC ARTHROPATHY
     Dosage: 50 MG, QWK
     Dates: start: 20110610
  3. LIPITOR [Concomitant]
     Dosage: 20 MG, UNK
     Route: 048
  4. FISH OIL [Concomitant]
  5. ALEVE [Concomitant]
     Dosage: 220 MG, UNK
     Route: 048

REACTIONS (2)
  - HEADACHE [None]
  - RASH [None]
